FAERS Safety Report 7034555-8 (Version None)
Quarter: 2010Q4

REPORT INFORMATION
  Report Type: 
  Country: None (occurrence: None)
  Receive Date: 20101008
  Receipt Date: 20101006
  Transmission Date: 20110411
  Serious: Yes (Hospitalization)
  Sender: FDA-Public Use
  Company Number: BR-BRISTOL-MYERS SQUIBB COMPANY-15320385

PATIENT
  Age: 46 Year
  Sex: Female
  Weight: 68 kg

DRUGS (2)
  1. ATAZANAVIR [Suspect]
     Indication: HIV INFECTION
     Dosage: LAST DOSE:01OCT2010
     Route: 048
     Dates: start: 20100218
  2. COMBIVIR [Suspect]
     Indication: HIV INFECTION
     Dosage: 1 DF=150/300MG,LAST DOSE:02OCT2010
     Route: 048
     Dates: start: 20091019

REACTIONS (1)
  - RENAL COLIC [None]
